FAERS Safety Report 4530403-6 (Version None)
Quarter: 2004Q4

REPORT INFORMATION
  Report Type: 
  Country: None (occurrence: None)
  Receive Date: 20041215
  Receipt Date: 20041201
  Transmission Date: 20050328
  Serious: Yes (Death, Hospitalization, Other)
  Sender: FDA-Public Use
  Company Number: USA-2002-0002836

PATIENT
  Age: 45 Year
  Sex: Male
  Weight: 69.8 kg

DRUGS (14)
  1. OXYCONTIN [Suspect]
     Indication: PAIN
     Dosage: SEE IMAGE
     Route: 048
     Dates: start: 20010101
  2. LORCET-HD [Suspect]
     Dosage: 10 MG
  3. MARIJUANA (CANNABIS) [Suspect]
  4. REMERON [Concomitant]
  5. RELAFEN [Concomitant]
  6. NEURONTIN [Concomitant]
  7. ULTRAM [Concomitant]
  8. SOMA [Concomitant]
  9. EFFEXOR [Concomitant]
  10. BIAXIN [Concomitant]
  11. XANAX [Concomitant]
  12. ZANAFLEX [Concomitant]
  13. TRANXENE [Concomitant]
  14. ZOLOFT [Concomitant]

REACTIONS (35)
  - ALCOHOL WITHDRAWAL SYNDROME [None]
  - ALCOHOLISM [None]
  - ANXIETY [None]
  - BACK PAIN [None]
  - COMPLETED SUICIDE [None]
  - COUGH [None]
  - DEPENDENT PERSONALITY DISORDER [None]
  - DEPRESSION [None]
  - DRUG ABUSER [None]
  - DRUG DEPENDENCE [None]
  - DRUG INEFFECTIVE [None]
  - DRUG WITHDRAWAL SYNDROME [None]
  - GUN SHOT WOUND [None]
  - HYPOAESTHESIA [None]
  - IMPAIRED DRIVING ABILITY [None]
  - INADEQUATE ANALGESIA [None]
  - INTENTIONAL MISUSE [None]
  - LOSS OF CONSCIOUSNESS [None]
  - MUSCLE SPASMS [None]
  - MUSCULOSKELETAL STIFFNESS [None]
  - NECK PAIN [None]
  - OXYGEN SATURATION DECREASED [None]
  - PAIN [None]
  - PAIN EXACERBATED [None]
  - PAIN IN EXTREMITY [None]
  - PARAESTHESIA [None]
  - PERSONALITY DISORDER [None]
  - POLYSUBSTANCE ABUSE [None]
  - PYREXIA [None]
  - RHONCHI [None]
  - SOMATOFORM DISORDER [None]
  - TEMPERATURE INTOLERANCE [None]
  - UPPER RESPIRATORY TRACT INFECTION [None]
  - WEIGHT DECREASED [None]
  - WHEEZING [None]
